FAERS Safety Report 11485168 (Version 1)
Quarter: 2015Q3

REPORT INFORMATION
  Report Type: Spontaneous
  Country: FR (occurrence: FR)
  Receive Date: 20150909
  Receipt Date: 20150909
  Transmission Date: 20151125
  Serious: Yes (Life-Threatening)
  Sender: FDA-Public Use
  Company Number: FR-GUERBET LLC-1041721

PATIENT
  Age: 65 Year
  Sex: Female

DRUGS (4)
  1. DOTAREM [Suspect]
     Active Substance: GADOTERATE MEGLUMINE
     Indication: NUCLEAR MAGNETIC RESONANCE IMAGING BRAIN
     Route: 042
     Dates: start: 20150813, end: 20150813
  2. PARACETAMOL [Concomitant]
     Active Substance: ACETAMINOPHEN
  3. OROCAL(CALCIUM CARBONATE, COLECALCIFEROL) [Concomitant]
  4. INEXIUM(ESOMEPRAZOLE MAGNESIUM) [Concomitant]

REACTIONS (4)
  - Hypotension [Recovered/Resolved]
  - Diarrhoea [Recovered/Resolved]
  - Abdominal pain [Recovered/Resolved]
  - Rash [Recovered/Resolved]

NARRATIVE: CASE EVENT DATE: 20150813
